FAERS Safety Report 7532371-1 (Version None)
Quarter: 2011Q2

REPORT INFORMATION
  Report Type: 
  Country: None (occurrence: None)
  Receive Date: 20110608
  Receipt Date: 20110603
  Transmission Date: 20111010
  Serious: Yes (Hospitalization, Other)
  Sender: FDA-Public Use
  Company Number: US-PFIZER INC-2010006423

PATIENT
  Sex: Male

DRUGS (3)
  1. VICODIN [Concomitant]
     Indication: ANALGESIC THERAPY
     Dosage: UNK
     Dates: start: 20080129, end: 20080511
  2. CHANTIX [Suspect]
     Indication: SMOKING CESSATION THERAPY
     Dosage: STARTING AND CONTINUING MONTH KIT
     Dates: start: 20080221, end: 20080501
  3. CIALIS [Concomitant]
     Indication: ERECTILE DYSFUNCTION
     Dosage: UNK
     Dates: start: 20080131, end: 20080401

REACTIONS (9)
  - INTENTIONAL OVERDOSE [None]
  - NIGHTMARE [None]
  - DEPRESSION [None]
  - ANXIETY [None]
  - ANGER [None]
  - ADJUSTMENT DISORDER [None]
  - HOSTILITY [None]
  - IMPULSIVE BEHAVIOUR [None]
  - SUICIDE ATTEMPT [None]
